FAERS Safety Report 13650404 (Version 1)
Quarter: 2017Q2

REPORT INFORMATION
  Report Type: Spontaneous
  Country: DK (occurrence: DK)
  Receive Date: 20170614
  Receipt Date: 20170614
  Transmission Date: 20170830
  Serious: Yes (Life-Threatening)
  Sender: FDA-Public Use
  Company Number: DK-ACCORD-052523

PATIENT
  Age: 70 Year
  Sex: Male
  Weight: 80 kg

DRUGS (2)
  1. DOCETAXEL ACCORD [Suspect]
     Active Substance: DOCETAXEL
     Indication: PROSTATE CANCER METASTATIC
     Route: 042
     Dates: start: 20160606, end: 20160809
  2. PREDNISOLON ACTAVIS [Concomitant]
     Active Substance: PREDNISOLONE
     Indication: PRODUCT USED FOR UNKNOWN INDICATION
     Route: 048
     Dates: start: 201607, end: 201607

REACTIONS (2)
  - Scleroderma renal crisis [Not Recovered/Not Resolved]
  - Systemic scleroderma [Not Recovered/Not Resolved]

NARRATIVE: CASE EVENT DATE: 20160802
